FAERS Safety Report 8677832 (Version 6)
Quarter: 2013Q2

REPORT INFORMATION
  Report Type: Spontaneous
  Country: JP (occurrence: JP)
  Receive Date: 20120723
  Receipt Date: 20130417
  Transmission Date: 20140414
  Serious: Yes (Hospitalization, Other)
  Sender: FDA-Public Use
  Company Number: JP-ROCHE-1086706

PATIENT
  Age: 4 Year
  Sex: Female
  Weight: 19 kg

DRUGS (7)
  1. ACTEMRA [Suspect]
     Indication: JUVENILE IDIOPATHIC ARTHRITIS
     Route: 041
     Dates: start: 20120625, end: 20120709
  2. ACTEMRA [Suspect]
     Indication: JUVENILE IDIOPATHIC ARTHRITIS
     Route: 041
     Dates: start: 20120829
  3. FAMOTIDINE [Concomitant]
     Indication: JUVENILE IDIOPATHIC ARTHRITIS
     Route: 048
     Dates: start: 20120620, end: 20120709
  4. PREDNISOLONE [Concomitant]
     Indication: JUVENILE IDIOPATHIC ARTHRITIS
     Route: 048
     Dates: start: 201103
  5. PREDNISOLONE [Concomitant]
     Route: 048
     Dates: start: 20120723
  6. PREDNISOLONE [Concomitant]
     Route: 065
     Dates: start: 20120730
  7. PREDNISOLONE [Concomitant]
     Route: 065
     Dates: start: 20120814

REACTIONS (1)
  - Autoimmune hepatitis [Recovered/Resolved]
